FAERS Safety Report 6781186-0 (Version None)
Quarter: 2010Q2

REPORT INFORMATION
  Report Type: 
  Country: None (occurrence: None)
  Receive Date: 20100621
  Receipt Date: 20100609
  Transmission Date: 20101027
  Serious: Yes (Hospitalization)
  Sender: FDA-Public Use
  Company Number: FR-PFIZER INC-2010071990

PATIENT
  Age: 34 Year
  Sex: Female

DRUGS (15)
  1. NEURONTIN [Suspect]
     Dosage: UNK
     Route: 048
     Dates: start: 20100516, end: 20100518
  2. PROPOFOL [Suspect]
     Dosage: UNK
     Route: 042
     Dates: start: 20100514, end: 20100517
  3. ATRACURIUM [Suspect]
     Dosage: 40MG PER DAY
     Route: 042
     Dates: start: 20100517, end: 20100517
  4. SUFENTA PRESERVATIVE FREE [Suspect]
     Dosage: UNK
     Route: 042
     Dates: start: 20100517, end: 20100517
  5. NORMACOL [Suspect]
     Dosage: UNK
     Route: 054
     Dates: start: 20100516
  6. DEXAMETHASONE [Suspect]
     Dosage: 0.4MG PER DAY
     Route: 042
     Dates: start: 20100517, end: 20100517
  7. EPHEDRINE [Suspect]
     Dosage: UNK
     Route: 042
     Dates: start: 20100517, end: 20100517
  8. BETADINE [Suspect]
     Dosage: UNK
     Route: 003
     Dates: start: 20100517, end: 20100517
  9. ROPIVACAINE [Suspect]
     Dosage: UNK
     Dates: start: 20100517, end: 20100517
  10. DROPERIDOL [Suspect]
     Dosage: UNK
     Route: 042
     Dates: start: 20100517, end: 20100519
  11. LOVENOX [Suspect]
     Dosage: UNK
     Route: 058
     Dates: start: 20100516, end: 20100518
  12. KETAMINE HCL [Suspect]
     Dosage: 10UG PER DAY
     Route: 042
     Dates: start: 20100517, end: 20100517
  13. AUGMENTIN '125' [Suspect]
     Dosage: 2G PER DAY
     Route: 042
     Dates: start: 20100517, end: 20100517
  14. SEVORANE [Suspect]
     Dosage: UNK
     Route: 055
     Dates: start: 20100517, end: 20100517
  15. NITROUS OXIDE [Suspect]
     Dosage: UNK
     Route: 055
     Dates: start: 20100517, end: 20100517

REACTIONS (4)
  - HAEMATURIA [None]
  - LYMPHOPENIA [None]
  - OLIGURIA [None]
  - RENAL FAILURE ACUTE [None]
